FAERS Safety Report 5196860-X (Version None)
Quarter: 2006Q4

REPORT INFORMATION
  Report Type: 
  Country: None (occurrence: None)
  Receive Date: 20061227
  Receipt Date: 20061219
  Transmission Date: 20070319
  Serious: Yes (Other)
  Sender: FDA-Public Use
  Company Number: 2006154841

PATIENT
  Age: 28 Year
  Sex: Female

DRUGS (2)
  1. HYDROXYZINE HCL [Suspect]
     Dosage: 100 TABLETS ONCE, ORAL
     Route: 048
  2. DILTIAZEM [Suspect]
     Dosage: 100 TABLETS ONCE, ORAL
     Route: 048

REACTIONS (8)
  - ABDOMINAL PAIN [None]
  - BLOOD PRESSURE DECREASED [None]
  - HYPOXIA [None]
  - INCORRECT DOSE ADMINISTERED [None]
  - NODAL RHYTHM [None]
  - PLEURAL EFFUSION [None]
  - PULMONARY CONGESTION [None]
  - SUICIDE ATTEMPT [None]
